FAERS Safety Report 4698642-1 (Version None)
Quarter: 2005Q2

REPORT INFORMATION
  Report Type: 
  Country: None (occurrence: None)
  Receive Date: 20050622
  Receipt Date: 20050607
  Transmission Date: 20051028
  Serious: Yes (Life-Threatening)
  Sender: FDA-Public Use
  Company Number: 05H-163-0300466-00

PATIENT
  Age: 12 Month

DRUGS (2)
  1. TPN ELECTROLYTES IN PLASTIC CONTAINER [Suspect]
     Indication: DRUG USE FOR UNKNOWN INDICATION
     Dosage: SEE IMAGE
     Dates: start: 20050516, end: 20050517
  2. TPN ELECTROLYTES IN PLASTIC CONTAINER [Suspect]
     Indication: DRUG USE FOR UNKNOWN INDICATION
     Dosage: SEE IMAGE
     Dates: start: 20050517

REACTIONS (6)
  - FLUID OVERLOAD [None]
  - HYPOKALAEMIA [None]
  - INCORRECT DRUG ADMINISTRATION RATE [None]
  - LACTIC ACIDOSIS [None]
  - MEDICATION ERROR [None]
  - METABOLIC ALKALOSIS [None]
